FAERS Safety Report 10056170 (Version 1)
Quarter: 2014Q2

REPORT INFORMATION
  Report Type: Report from Study
  Country: JP (occurrence: JP)
  Receive Date: 20140403
  Receipt Date: 20140403
  Transmission Date: 20141212
  Serious: Yes (Hospitalization)
  Sender: FDA-Public Use
  Company Number: JP-SA-2014SA039753

PATIENT
  Age: 56 Year
  Sex: Female
  Weight: 44.3 kg

DRUGS (5)
  1. THYMOGLOBULINE [Suspect]
     Indication: APLASTIC ANAEMIA
     Route: 042
     Dates: start: 20130408, end: 20130412
  2. NEORAL [Suspect]
     Indication: PRODUCT USED FOR UNKNOWN INDICATION
     Route: 065
     Dates: start: 20130408
  3. VALTREX [Concomitant]
     Dates: start: 20130409
  4. DIFLUCAN [Concomitant]
     Dates: start: 20130409
  5. BAKTAR [Concomitant]
     Dates: start: 20130409

REACTIONS (1)
  - Febrile neutropenia [Recovering/Resolving]
